FAERS Safety Report 7179696-X (Version None)
Quarter: 2010Q4

REPORT INFORMATION
  Report Type: 
  Country: None (occurrence: None)
  Receive Date: 20101221
  Receipt Date: 20101012
  Transmission Date: 20110411
  Serious: Yes (Other)
  Sender: FDA-Public Use
  Company Number: ZA-ROCHE-733440

PATIENT
  Sex: Female

DRUGS (2)
  1. KYTRIL [Suspect]
     Route: 065
  2. TRAMAL [Suspect]
     Route: 065

REACTIONS (1)
  - EPILEPSY [None]
